FAERS Safety Report 12335691 (Version 1)
Quarter: 2016Q2

REPORT INFORMATION
  Report Type: Spontaneous
  Country: US (occurrence: US)
  Receive Date: 20160505
  Receipt Date: 20160505
  Transmission Date: 20160815
  Serious: Yes (Other)
  Sender: FDA-Public Use
  Company Number: US-BRISTOL-MYERS SQUIBB COMPANY-BMS-2016-034513

PATIENT
  Sex: Male

DRUGS (1)
  1. OPDIVO [Suspect]
     Active Substance: NIVOLUMAB
     Indication: NON-SMALL CELL LUNG CANCER
     Route: 065

REACTIONS (6)
  - Blood thyroid stimulating hormone decreased [Unknown]
  - Balance disorder [Unknown]
  - Eyelid ptosis [Unknown]
  - Neurotoxicity [Unknown]
  - Malignant neoplasm progression [Unknown]
  - Tri-iodothyronine decreased [Unknown]
